FAERS Safety Report 9537105 (Version 3)
Quarter: 2013Q4

REPORT INFORMATION
  Report Type: Spontaneous
  Country: US (occurrence: US)
  Receive Date: 20130919
  Receipt Date: 20131118
  Transmission Date: 20140711
  Serious: Yes (Other)
  Sender: FDA-Public Use
  Company Number: US-BAYER-2013-111636

PATIENT
  Age: 61 Year
  Sex: Male
  Weight: 74.97 kg

DRUGS (3)
  1. XOFIGO [Suspect]
     Indication: PROSTATE CANCER METASTATIC
     Dosage: UNK
     Dates: start: 20130821
  2. XOFIGO [Suspect]
     Indication: PROSTATE CANCER METASTATIC
     Dosage: UNK
     Dates: start: 20130918
  3. XGEVA [Concomitant]

REACTIONS (4)
  - Haemoglobin decreased [None]
  - Weight decreased [None]
  - Musculoskeletal stiffness [None]
  - White blood cell count decreased [None]
